FAERS Safety Report 7128604-6 (Version None)
Quarter: 2010Q4

REPORT INFORMATION
  Report Type: 
  Country: None (occurrence: None)
  Receive Date: 20101103
  Receipt Date: 20101027
  Transmission Date: 20110411
  Serious: Yes (Hospitalization)
  Sender: FDA-Public Use
  Company Number: 2009SP023505

PATIENT
  Age: 27 Year
  Sex: Female
  Weight: 129.2752 kg

DRUGS (3)
  1. NUVARING [Suspect]
     Indication: CONTRACEPTION
     Dosage: 1 DF
     Dates: start: 20080822, end: 20080912
  2. EFFEXOR XR [Concomitant]
  3. MIRALAX [Concomitant]

REACTIONS (22)
  - CEREBROVASCULAR ACCIDENT [None]
  - CHEST PAIN [None]
  - CONFUSIONAL STATE [None]
  - CONVULSION [None]
  - DIZZINESS [None]
  - DRUG HYPERSENSITIVITY [None]
  - DYSPNOEA [None]
  - ERYTHEMA [None]
  - FEELING HOT [None]
  - IMPAIRED HEALING [None]
  - INFUSION SITE EXTRAVASATION [None]
  - INFUSION SITE HAEMATOMA [None]
  - INJURY [None]
  - MENTAL DISORDER [None]
  - MIGRAINE [None]
  - OEDEMA PERIPHERAL [None]
  - OPEN WOUND [None]
  - PAIN IN EXTREMITY [None]
  - PANIC REACTION [None]
  - SWELLING [None]
  - SWELLING FACE [None]
  - WOUND NECROSIS [None]
